FAERS Safety Report 20200507 (Version 1)
Quarter: 2021Q4

REPORT INFORMATION
  Report Type: Spontaneous
  Country: US (occurrence: None)
  Receive Date: 20211215
  Receipt Date: 20211215
  Transmission Date: 20220303
  Serious: No
  Sender: FDA-Public Use
  Company Number: None

PATIENT

DRUGS (2)
  1. CANNABIDIOL\.DELTA.8-TETRAHYDROCANNABINOL\DEVICE\HERBALS [Suspect]
     Active Substance: CANNABIDIOL\.DELTA.8-TETRAHYDROCANNABINOL\DEVICE\HERBALS
  2. CANNABIDIOL\.DELTA.8-TETRAHYDROCANNABINOL\DEVICE\HERBALS [Suspect]
     Active Substance: CANNABIDIOL\.DELTA.8-TETRAHYDROCANNABINOL\DEVICE\HERBALS

REACTIONS (2)
  - Counterfeit product administered [None]
  - Suspected counterfeit product [None]
